FAERS Safety Report 17039434 (Version 3)
Quarter: 2019Q4

REPORT INFORMATION
  Report Type: Report from Study
  Country: TW (occurrence: TW)
  Receive Date: 20191115
  Receipt Date: 20191227
  Transmission Date: 20200122
  Serious: Yes (Hospitalization)
  Sender: FDA-Public Use
  Company Number: TW-TOLMAR, INC.-19TW000921

PATIENT
  Age: 76 Year
  Sex: Male

DRUGS (4)
  1. HARNALIDGE [Concomitant]
     Active Substance: TAMSULOSIN HYDROCHLORIDE
     Dosage: UNK
     Dates: start: 20180702
  2. ELIGARD [Suspect]
     Active Substance: LEUPROLIDE ACETATE
     Indication: HORMONE-DEPENDENT PROSTATE CANCER
     Dosage: 22.5 MG Q 3 MONTHS
     Route: 058
     Dates: start: 20180202, end: 20190517
  3. PIRACETAM [Concomitant]
     Active Substance: PIRACETAM
     Dosage: UNK
     Dates: start: 20180702
  4. CARDOLOL [Concomitant]
     Active Substance: PROPRANOLOL HYDROCHLORIDE
     Dosage: UNK
     Dates: start: 20180117

REACTIONS (1)
  - Prostate cancer [Not Recovered/Not Resolved]

NARRATIVE: CASE EVENT DATE: 20190326
